FAERS Safety Report 9536881 (Version 2)
Quarter: 2013Q4

REPORT INFORMATION
  Report Type: Spontaneous
  Country: US (occurrence: US)
  Receive Date: 20130919
  Receipt Date: 20131028
  Transmission Date: 20140711
  Serious: Yes (Other)
  Sender: FDA-Public Use
  Company Number: US-PFIZER INC-2013269866

PATIENT
  Sex: Female

DRUGS (1)
  1. NICOTROL INHALER [Suspect]
     Indication: SMOKING CESSATION THERAPY
     Dosage: UNK
     Route: 055

REACTIONS (6)
  - Choking [Unknown]
  - Viral infection [Unknown]
  - Nasopharyngitis [Unknown]
  - Influenza [Unknown]
  - Bronchitis [Unknown]
  - Malaise [Unknown]
